FAERS Safety Report 26101246 (Version 1)
Quarter: 2025Q4

REPORT INFORMATION
  Report Type: Spontaneous
  Country: EU (occurrence: EU)
  Receive Date: 20251128
  Receipt Date: 20251128
  Transmission Date: 20260118
  Serious: Yes (Other)
  Sender: HELSINN HEALTHCARE
  Company Number: EU-HBP-2025FR032576

PATIENT
  Sex: Female

DRUGS (2)
  1. MECHLORETHAMINE HYDROCHLORIDE [Suspect]
     Active Substance: MECHLORETHAMINE HYDROCHLORIDE
     Indication: Product used for unknown indication
     Dosage: UNK, QOD
     Route: 065
     Dates: end: 2025
  2. MECHLORETHAMINE HYDROCHLORIDE [Suspect]
     Active Substance: MECHLORETHAMINE HYDROCHLORIDE
     Dosage: UNK, UNKNOWN
     Route: 065
     Dates: start: 2025, end: 2025

REACTIONS (5)
  - Cutaneous T-cell lymphoma [Unknown]
  - Condition aggravated [Unknown]
  - Skin lesion [Unknown]
  - Off label use [Unknown]
  - Maternal exposure during pregnancy [Unknown]
